FAERS Safety Report 16799233 (Version 1)
Quarter: 2019Q3

REPORT INFORMATION
  Report Type: Spontaneous
  Country: FR (occurrence: FR)
  Receive Date: 20190912
  Receipt Date: 20190912
  Transmission Date: 20191005
  Serious: Yes (Life-Threatening)
  Sender: FDA-Public Use
  Company Number: FR-MYLANLABS-2019M1085722

PATIENT
  Age: 75 Year
  Sex: Female
  Weight: 58 kg

DRUGS (7)
  1. CEFAZOLIN [Suspect]
     Active Substance: CEFAZOLIN
     Indication: PROPHYLAXIS
     Dosage: UNK
     Route: 042
     Dates: start: 20180219
  2. EXACYL [Suspect]
     Active Substance: TRANEXAMIC ACID
     Indication: INDUCTION OF ANAESTHESIA
     Dosage: UNK
     Route: 042
     Dates: start: 20180219
  3. PROPOFOL. [Suspect]
     Active Substance: PROPOFOL
     Indication: INDUCTION OF ANAESTHESIA
     Dosage: UNK
     Route: 042
     Dates: start: 20180219
  4. KETAMINE [Suspect]
     Active Substance: KETAMINE
     Indication: INDUCTION OF ANAESTHESIA
     Dosage: UNK
     Route: 042
     Dates: start: 20180219
  5. DEXAMETHASONE. [Suspect]
     Active Substance: DEXAMETHASONE
     Indication: INDUCTION OF ANAESTHESIA
     Dosage: UNK
     Route: 042
     Dates: start: 20180219
  6. ESMERON [Suspect]
     Active Substance: ROCURONIUM BROMIDE
     Indication: INDUCTION OF ANAESTHESIA
     Dosage: UNK
     Route: 042
     Dates: start: 20180219
  7. SUFENTA [Suspect]
     Active Substance: SUFENTANIL CITRATE
     Indication: INDUCTION OF ANAESTHESIA
     Dosage: UNK
     Route: 042
     Dates: start: 20180219

REACTIONS (3)
  - Tachycardia [Recovered/Resolved]
  - Hypotension [Recovered/Resolved]
  - Rash [Recovered/Resolved]

NARRATIVE: CASE EVENT DATE: 20180219
